FAERS Safety Report 19255813 (Version 2)
Quarter: 2021Q2

REPORT INFORMATION
  Report Type: Spontaneous
  Country: GR (occurrence: GR)
  Receive Date: 20210514
  Receipt Date: 20210622
  Transmission Date: 20210717
  Serious: Yes (Hospitalization, Other)
  Sender: FDA-Public Use
  Company Number: GR-ABBVIE-21K-066-3902420-00

PATIENT
  Age: 39 Year
  Sex: Female
  Weight: 65 kg

DRUGS (1)
  1. HUMIRA [Suspect]
     Active Substance: ADALIMUMAB
     Indication: HIDRADENITIS
     Route: 058
     Dates: start: 2015, end: 2016

REACTIONS (10)
  - Squamous cell carcinoma [Unknown]
  - Hypoalbuminaemia [Unknown]
  - Amyloidosis [Unknown]
  - Anaemia [Unknown]
  - Protein urine present [Unknown]
  - Renal amyloidosis [Unknown]
  - N-terminal prohormone brain natriuretic peptide increased [Unknown]
  - Amyloidosis [Unknown]
  - Hospitalisation [Unknown]
  - Cardiac amyloidosis [Unknown]

NARRATIVE: CASE EVENT DATE: 202012
